FAERS Safety Report 24869660 (Version 1)
Quarter: 2025Q1

REPORT INFORMATION
  Report Type: Spontaneous
  Country: US (occurrence: None)
  Receive Date: 20250118
  Receipt Date: 20250118
  Transmission Date: 20250409
  Serious: Yes (unspecified)
  Sender: FDA-CTU
  Company Number: None

PATIENT
  Age: 32 Year
  Sex: Male
  Weight: 65.25 kg

DRUGS (3)
  1. TYMLOS [Suspect]
     Active Substance: ABALOPARATIDE
     Indication: Osteoporosis
     Dosage: OTHER QUANTITY : 1 INJECTION(S)?FREQUENCY : DAILY?OTHER ROUTE : INJECTED UNDER THE SKIN IN LOWER ABDOMEN?
     Route: 050
     Dates: start: 20250117, end: 20250117
  2. VITAMIN D [Concomitant]
     Active Substance: VITAMIN D NOS
  3. CALCIUM [Concomitant]
     Active Substance: CALCIUM

REACTIONS (3)
  - Back pain [None]
  - Neck pain [None]
  - Spinal pain [None]

NARRATIVE: CASE EVENT DATE: 20250117
